FAERS Safety Report 8833941 (Version 1)
Quarter: 2012Q4

REPORT INFORMATION
  Report Type: Spontaneous
  Country: US (occurrence: None)
  Receive Date: 20121010
  Receipt Date: 20121010
  Transmission Date: 20130627
  Serious: Yes (Other)
  Sender: FDA-Public Use
  Company Number: None

PATIENT
  Sex: Female
  Weight: 47.63 kg

DRUGS (1)
  1. ALPRAZOLAM [Suspect]
     Dosage: .25 3xs daily po
     Route: 048
     Dates: start: 20121006, end: 20121007

REACTIONS (12)
  - Product substitution issue [None]
  - Personality change [None]
  - Tremor [None]
  - Palpitations [None]
  - Muscle tightness [None]
  - Irritability [None]
  - Dizziness [None]
  - Abdominal pain upper [None]
  - Headache [None]
  - Gastrooesophageal reflux disease [None]
  - Insomnia [None]
  - Drug ineffective [None]
